FAERS Safety Report 6175691-8 (Version None)
Quarter: 2009Q2

REPORT INFORMATION
  Report Type: 
  Country: None (occurrence: None)
  Receive Date: 20090501
  Receipt Date: 20090423
  Transmission Date: 20091009
  Serious: Yes (Hospitalization)
  Sender: FDA-Public Use
  Company Number: DE-ABBOTT-07P-062-0426632-00

PATIENT
  Sex: Female
  Weight: 90 kg

DRUGS (4)
  1. HUMIRA [Suspect]
     Indication: RHEUMATOID ARTHRITIS
     Route: 058
     Dates: start: 20061130, end: 20070601
  2. KATADOLON [Concomitant]
     Indication: RHEUMATOID ARTHRITIS
     Route: 048
  3. PREDNISOLONE [Concomitant]
     Indication: RHEUMATOID ARTHRITIS
     Dosage: 12-20 MG
     Route: 048
  4. TRAMADOL HCL [Concomitant]
     Indication: PAIN
     Dates: end: 20071001

REACTIONS (4)
  - ABSCESS [None]
  - FISTULA [None]
  - HERNIA REPAIR [None]
  - IMPAIRED HEALING [None]
